FAERS Safety Report 13845568 (Version 1)
Quarter: 2017Q3

REPORT INFORMATION
  Report Type: Spontaneous
  Country: US (occurrence: US)
  Receive Date: 20170808
  Receipt Date: 20170808
  Transmission Date: 20171127
  Serious: No
  Sender: FDA-Public Use
  Company Number: US-ROCHE-796321

PATIENT

DRUGS (1)
  1. BONVIVA [Suspect]
     Active Substance: IBANDRONATE SODIUM
     Indication: PRODUCT USED FOR UNKNOWN INDICATION
     Dosage: FREQUENCY REPORTED AS ONCE.
     Route: 065

REACTIONS (5)
  - Pain in extremity [Unknown]
  - Headache [Unknown]
  - Unevaluable event [Unknown]
  - Diarrhoea [Unknown]
  - Back pain [Unknown]
